FAERS Safety Report 7812637-8 (Version None)
Quarter: 2011Q4

REPORT INFORMATION
  Report Type: 
  Country: None (occurrence: None)
  Receive Date: 20111013
  Receipt Date: 20110930
  Transmission Date: 20120403
  Serious: Yes (Hospitalization)
  Sender: FDA-Public Use
  Company Number: US-BAYER-2011-000116

PATIENT
  Age: 37 Year
  Sex: Female
  Weight: 56.4 kg

DRUGS (6)
  1. YASMIN [Suspect]
     Dosage: UNK
     Dates: start: 20010101, end: 20060101
  2. IBUPROFEN [Concomitant]
  3. DROSPIRENONE AND ETHINYL ESTRADIOL [Suspect]
     Indication: ENDOMETRIOSIS
     Dosage: UNK
     Dates: start: 20070201, end: 20090701
  4. YASMIN [Suspect]
     Dosage: UNK
     Dates: start: 20070201, end: 20090701
  5. PERCOCET [Concomitant]
  6. YASMIN [Suspect]
     Indication: ENDOMETRIOSIS
     Dosage: UNK
     Dates: start: 20010101, end: 20060101

REACTIONS (9)
  - PULMONARY INFARCTION [None]
  - PULMONARY EMBOLISM [None]
  - LUNG DISORDER [None]
  - EMOTIONAL DISTRESS [None]
  - DYSPNOEA [None]
  - CHEST PAIN [None]
  - COUGH [None]
  - INJURY [None]
  - PAIN [None]
